FAERS Safety Report 20131463 (Version 3)
Quarter: 2021Q4

REPORT INFORMATION
  Report Type: Spontaneous
  Country: ES (occurrence: ES)
  Receive Date: 20211130
  Receipt Date: 20211203
  Transmission Date: 20220304
  Serious: Yes (Death, Life-Threatening, Hospitalization, Other)
  Sender: FDA-Public Use
  Company Number: ES-MLMSERVICE-20211117-3216637-1

PATIENT
  Age: 67 Year
  Sex: Male

DRUGS (4)
  1. AMLODIPINE BESYLATE [Suspect]
     Active Substance: AMLODIPINE BESYLATE
     Dosage: UNK
  2. LORAZEPAM [Suspect]
     Active Substance: LORAZEPAM
     Dosage: UNK
  3. RIVAROXABAN [Suspect]
     Active Substance: RIVAROXABAN
     Dosage: UNK
  4. SIMVASTATIN [Suspect]
     Active Substance: SIMVASTATIN
     Dosage: UNK

REACTIONS (12)
  - Toxicity to various agents [Fatal]
  - Cardiac dysfunction [Fatal]
  - Renal failure [Fatal]
  - Shock [Fatal]
  - Pulmonary alveolar haemorrhage [Fatal]
  - Multiple organ dysfunction syndrome [Fatal]
  - Neurological decompensation [Fatal]
  - Haemoptysis [Fatal]
  - Haemodynamic instability [Fatal]
  - Metabolic acidosis [Fatal]
  - Hyperlactacidaemia [Fatal]
  - Respiratory failure [Fatal]
